FAERS Safety Report 25188733 (Version 2)
Quarter: 2025Q2

REPORT INFORMATION
  Report Type: Report from Study
  Country: US (occurrence: US)
  Receive Date: 20250411
  Receipt Date: 20250502
  Transmission Date: 20250716
  Serious: Yes (Other)
  Sender: pharmaAND
  Company Number: US-Pharmaand-2025000307

PATIENT
  Age: 56 Year
  Sex: Female

DRUGS (2)
  1. RUBRACA [Suspect]
     Active Substance: RUCAPARIB CAMSYLATE
     Indication: Ovarian cancer
     Dosage: TAKE 2 300MG TABLETS TWICE DAILY
     Route: 048
  2. RUBRACA [Suspect]
     Active Substance: RUCAPARIB CAMSYLATE
     Indication: Ovarian cancer
     Dosage: TAKE 2 250MG TABLETS TWICE DAILY
     Route: 048

REACTIONS (17)
  - Seizure [Unknown]
  - Vomiting [Unknown]
  - Fatigue [Unknown]
  - Dysgeusia [Unknown]
  - Decreased appetite [Unknown]
  - Weight decreased [Unknown]
  - Abdominal discomfort [Unknown]
  - Flatulence [Unknown]
  - Bladder pain [Unknown]
  - Dry mouth [Unknown]
  - Oropharyngeal pain [Unknown]
  - Brain fog [Unknown]
  - Tongue coated [Unknown]
  - Faeces discoloured [Unknown]
  - Abdominal pain upper [Unknown]
  - Stomatitis [Unknown]
  - Diarrhoea [Unknown]
